FAERS Safety Report 10684026 (Version 2)
Quarter: 2015Q1

REPORT INFORMATION
  Report Type: Spontaneous
  Country: FI (occurrence: FI)
  Receive Date: 20141230
  Receipt Date: 20150115
  Transmission Date: 20150720
  Serious: Yes (Life-Threatening, Hospitalization)
  Sender: FDA-Public Use
  Company Number: FI-ROCHE-1515189

PATIENT
  Age: 60 Year
  Sex: Male

DRUGS (8)
  1. PANADOL [Concomitant]
     Active Substance: ACETAMINOPHEN
     Indication: PAIN
     Dosage: WHEN NEEDED, USED FOR YEARS
     Route: 048
  2. PRIMASPAN [Concomitant]
     Indication: CARDIAC DISORDER
     Route: 048
  3. LIPCUT [Concomitant]
     Active Substance: SIMVASTATIN
     Dosage: USED FOR YEARS
     Route: 048
  4. ROACTEMRA [Suspect]
     Active Substance: TOCILIZUMAB
     Route: 042
     Dates: start: 20141110, end: 20141110
  5. ROACTEMRA [Suspect]
     Active Substance: TOCILIZUMAB
     Indication: ARTHRITIS
     Route: 042
     Dates: start: 20141013, end: 20141013
  6. EMCONCOR [Concomitant]
     Active Substance: BISOPROLOL FUMARATE
     Indication: CARDIAC DISORDER
     Route: 048
  7. PREDNISOLONE. [Concomitant]
     Active Substance: PREDNISOLONE
     Route: 048
  8. SERETIDE [Concomitant]
     Active Substance: FLUTICASONE FUROATE\SALMETEROL XINAFOATE
     Indication: ASTHMA
     Route: 055

REACTIONS (4)
  - Large intestine perforation [Recovered/Resolved with Sequelae]
  - Post procedural haemorrhage [Recovered/Resolved]
  - Diverticulitis [Recovered/Resolved with Sequelae]
  - Urine flow decreased [Unknown]

NARRATIVE: CASE EVENT DATE: 20141129
